FAERS Safety Report 4868389-7 (Version None)
Quarter: 2005Q4

REPORT INFORMATION
  Report Type: 
  Country: None (occurrence: None)
  Receive Date: 20051229
  Receipt Date: 20051128
  Transmission Date: 20060501
  Serious: Yes (Hospitalization)
  Sender: FDA-Public Use
  Company Number: J200504024

PATIENT
  Age: 39 Year
  Sex: Female

DRUGS (1)
  1. SAWACILLIN [Suspect]
     Indication: INFECTION PROPHYLAXIS
     Dosage: 250MG THREE TIMES PER DAY
     Route: 048
     Dates: start: 20050804, end: 20050806

REACTIONS (4)
  - ABDOMINAL PAIN [None]
  - DIARRHOEA HAEMORRHAGIC [None]
  - ENTEROCOLITIS HAEMORRHAGIC [None]
  - MELAENA [None]
